FAERS Safety Report 11574641 (Version 4)
Quarter: 2015Q4

REPORT INFORMATION
  Report Type: Spontaneous
  Country: US (occurrence: US)
  Receive Date: 20150916
  Receipt Date: 20151110
  Transmission Date: 20160304
  Serious: No
  Sender: FDA-Public Use
  Company Number: US-ELI_LILLY_AND_COMPANY-US200911002005

PATIENT
  Age: 83 Year
  Sex: Female

DRUGS (10)
  1. FORTEO [Suspect]
     Active Substance: TERIPARATIDE
     Dosage: 20 UG, QD
  2. VITAMIN D [Concomitant]
     Active Substance: CHOLECALCIFEROL
  3. FORTEO [Suspect]
     Active Substance: TERIPARATIDE
     Dosage: 20 UG, QD
  4. FORTEO [Suspect]
     Active Substance: TERIPARATIDE
     Dosage: 20 UG, QD
  5. FORTEO [Suspect]
     Active Substance: TERIPARATIDE
     Dosage: 20 UG, QD
  6. CELEBREX [Concomitant]
     Active Substance: CELECOXIB
     Indication: ARTHRITIS
     Dosage: UNK, WEEKLY (1/W)
     Route: 065
  7. FLAXSEED [Concomitant]
     Active Substance: FLAX SEED
  8. VITAMIN C [Concomitant]
     Active Substance: ASCORBIC ACID
  9. BETIMOL [Concomitant]
     Active Substance: TIMOLOL
  10. FORTEO [Suspect]
     Active Substance: TERIPARATIDE
     Indication: OSTEOPOROSIS
     Dosage: 20 UG, QD
     Dates: start: 200910

REACTIONS (29)
  - Pulmonary mass [Not Recovered/Not Resolved]
  - Flushing [Unknown]
  - Inflammation [Unknown]
  - Dyspnoea [Unknown]
  - Apathy [Unknown]
  - Pain in extremity [Unknown]
  - Arthritis [Unknown]
  - Protein total decreased [Unknown]
  - Low density lipoprotein abnormal [Unknown]
  - Pain [Recovering/Resolving]
  - Arthralgia [Unknown]
  - Muscle spasms [Not Recovered/Not Resolved]
  - Renal cyst [Unknown]
  - Blood cholesterol increased [Unknown]
  - Pain in extremity [Unknown]
  - Joint swelling [Unknown]
  - Vascular injury [Unknown]
  - Epicondylitis [Unknown]
  - Musculoskeletal pain [Not Recovered/Not Resolved]
  - Pain in extremity [Unknown]
  - Neck pain [Not Recovered/Not Resolved]
  - Musculoskeletal pain [Recovering/Resolving]
  - Pain in extremity [Recovering/Resolving]
  - Peripheral swelling [Not Recovered/Not Resolved]
  - Muscle spasms [Unknown]
  - Musculoskeletal pain [Unknown]
  - Visual impairment [Unknown]
  - Contusion [Unknown]
  - Pain [Not Recovered/Not Resolved]

NARRATIVE: CASE EVENT DATE: 201001
